FAERS Safety Report 11279730 (Version 1)
Quarter: 2015Q3

REPORT INFORMATION
  Report Type: Spontaneous
  Country: US (occurrence: None)
  Receive Date: 20150716
  Receipt Date: 20150716
  Transmission Date: 20151125
  Serious: Yes (Other)
  Sender: FDA-Public Use
  Company Number: None

PATIENT
  Age: 63 Year
  Sex: Male

DRUGS (14)
  1. MILK THISTLE [Concomitant]
     Active Substance: MILK THISTLE
  2. MAGNESIUM [Concomitant]
     Active Substance: MAGNESIUM
  3. CHOLINE [Concomitant]
     Active Substance: CHOLINE
  4. QUERCETIN [Concomitant]
     Active Substance: QUERCETIN
  5. POTASSIUM [Concomitant]
     Active Substance: POTASSIUM
  6. DELSYM [Suspect]
     Active Substance: DEXTROMETHORPHAN
     Indication: PULMONARY CONGESTION
  7. NATTOKINASE [Concomitant]
     Active Substance: NATTOKINASE
  8. DILITIAZEM [Concomitant]
     Active Substance: DILTIAZEM
  9. DELSYM [Suspect]
     Active Substance: DEXTROMETHORPHAN
     Indication: INFLUENZA
  10. DIGOXIN. [Concomitant]
     Active Substance: DIGOXIN
  11. PREDAXA [Concomitant]
  12. FISH OIL [Concomitant]
     Active Substance: FISH OIL
  13. D3 [Concomitant]
     Active Substance: 25-HYDROXYCHOLECALCIFEROL, 5-TRANS-
  14. MULTIVITAMIN [Concomitant]
     Active Substance: VITAMINS

REACTIONS (3)
  - Blood pressure abnormal [None]
  - Product formulation issue [None]
  - Product substitution issue [None]

NARRATIVE: CASE EVENT DATE: 20150711
